FAERS Safety Report 10052169 (Version 1)
Quarter: 2014Q2

REPORT INFORMATION
  Report Type: Spontaneous
  Country: US (occurrence: None)
  Receive Date: 20140401
  Receipt Date: 20140401
  Transmission Date: 20141212
  Serious: Yes (Hospitalization)
  Sender: FDA-Public Use
  Company Number: None

PATIENT
  Age: 56 Year
  Sex: Female

DRUGS (3)
  1. LIPOSOMAL DOXORUBICIN [Suspect]
     Indication: NEOPLASM MALIGNANT
     Dates: start: 20140305
  2. DEXAMETHASONE [Concomitant]
  3. ONDANSETRON [Concomitant]

REACTIONS (4)
  - Chest pain [None]
  - Dyspnoea [None]
  - Flushing [None]
  - Infusion related reaction [None]
